FAERS Safety Report 5295790-2 (Version None)
Quarter: 2007Q2

REPORT INFORMATION
  Report Type: 
  Country: None (occurrence: None)
  Receive Date: 20070410
  Receipt Date: 20070410
  Transmission Date: 20071010
  Serious: Yes (Hospitalization)
  Sender: FDA-Public Use
  Company Number: None

PATIENT
  Sex: Female
  Weight: 75 kg

DRUGS (4)
  1. FLUOROURACIL [Suspect]
     Dosage: 29349 MG
     Dates: end: 20070305
  2. BEVACIZUMAB (RHUMAB VEGF) [Suspect]
     Dosage: 2442 MG
     Dates: end: 20070305
  3. LEUCOVORIN CALCIUM [Suspect]
     Dosage: 4876 MG
     Dates: end: 20070305
  4. ELOXATIN [Suspect]
     Dosage: 861 MG
     Dates: end: 20070305

REACTIONS (3)
  - CARDIAC FAILURE CONGESTIVE [None]
  - CARDIOMYOPATHY [None]
  - MYOCARDIAL INFARCTION [None]
